FAERS Safety Report 10234110 (Version 1)
Quarter: 2014Q2

REPORT INFORMATION
  Report Type: Spontaneous
  Country: DE (occurrence: DE)
  Receive Date: 20140612
  Receipt Date: 20140612
  Transmission Date: 20141212
  Serious: Yes (Hospitalization)
  Sender: FDA-Public Use
  Company Number: DE-MYLANLABS-2014S1012822

PATIENT
  Age: 61 Year
  Sex: Male

DRUGS (18)
  1. MIRTAZAPIN [Suspect]
     Dosage: DAILY DOSE: 15 MG MILLIGRAM(S) EVERY DAY
     Route: 048
     Dates: start: 20120703, end: 20120704
  2. MIRTAZAPIN [Suspect]
     Dosage: DAILY DOSE: 7.5 MG MILLIGRAM(S) EVERY DAY
     Route: 048
     Dates: start: 20120705, end: 20120709
  3. MIRTAZAPIN [Suspect]
     Dosage: DAILY DOSE: 15 MG MILLIGRAM(S) EVERY DAY
     Route: 048
     Dates: start: 20120710, end: 20120713
  4. MIRTAZAPIN [Suspect]
     Dosage: DAILY DOSE: 15 MG MILLIGRAM(S) EVERY DAY
     Route: 048
     Dates: start: 20120912, end: 20120918
  5. SEROQUEL [Suspect]
     Dosage: DAILY DOSE: 50 MG MILLIGRAM(S) EVERY DAY
     Route: 048
     Dates: start: 20120717
  6. SEROQUEL [Suspect]
     Dosage: DAILY DOSE: 100 MG MILLIGRAM(S) EVERY DAY
     Route: 048
     Dates: start: 20120718, end: 20120722
  7. SEROQUEL [Suspect]
     Dosage: DAILY DOSE: 200 MG MILLIGRAM(S) EVERY DAY
     Route: 048
     Dates: start: 20120723, end: 20120905
  8. SEROQUEL [Suspect]
     Dosage: DAILY DOSE: 300 MG MILLIGRAM(S) EVERY DAY
     Route: 048
     Dates: start: 20120906, end: 20120921
  9. SEROQUEL [Suspect]
     Dosage: DAILY DOSE: 150 MG MILLIGRAM(S) EVERY DAY
     Route: 048
     Dates: start: 20120922
  10. SEROQUEL [Suspect]
     Dosage: DAILY DOSE: 50 MG MILLIGRAM(S) EVERY DAY
     Route: 048
     Dates: start: 20120923
  11. JATROSOM N [Concomitant]
     Dosage: DAILY DOSE: 60 MG MILLIGRAM(S) EVERY DAY
     Route: 048
     Dates: end: 20120629
  12. JATROSOM N [Concomitant]
     Dosage: DAILY DOSE: 40 MG MILLIGRAM(S) EVERY DAY
     Route: 048
     Dates: start: 20120630, end: 20120709
  13. JATROSOM N [Concomitant]
     Dosage: DAILY DOSE: 20 MG MILLIGRAM(S) EVERY DAY
     Route: 048
     Dates: start: 20120710, end: 20120716
  14. JATROSOM N [Concomitant]
     Dosage: DAILY DOSE: 10 MG MILLIGRAM(S) EVERY DAY
     Route: 048
     Dates: start: 20120717, end: 20120723
  15. DOMINAL [Concomitant]
     Dosage: DAILY DOSE: 80 MG MILLIGRAM(S) EVERY DAY
     Route: 048
  16. PANTOZOL [Concomitant]
     Dosage: DAILY DOSE: 20 MG MILLIGRAM(S) EVERY DAY
     Route: 048
     Dates: end: 20120818
  17. SPIRIVA [Concomitant]
     Dosage: DAILY DOSE: 36 UG MICROGRAM(S) EVERY DAY
     Route: 048
  18. PANTOZOL [Concomitant]
     Dosage: DAILY DOSE: 40 MG MILLIGRAM(S) EVERY DAY
     Route: 048
     Dates: start: 20120819

REACTIONS (1)
  - Restless legs syndrome [Recovered/Resolved]
